FAERS Safety Report 8473681-3 (Version None)
Quarter: 2012Q2

REPORT INFORMATION
  Report Type: 
  Country: None (occurrence: None)
  Receive Date: 20120628
  Receipt Date: 20111118
  Transmission Date: 20120825
  Serious: Yes (Death)
  Sender: FDA-Public Use
  Company Number: US-MYLANLABS-2011S1017800

PATIENT
  Age: 56 Year
  Sex: Male
  Weight: 112.49 kg

DRUGS (8)
  1. ARICEPT [Concomitant]
  2. LORTAB [Concomitant]
     Dosage: 10/500MG
  3. WELLBUTRIN SR [Concomitant]
  4. PRILOSEC [Concomitant]
  5. LYRICA [Concomitant]
  6. URISPAS [Concomitant]
  7. EFFEXOR XR [Concomitant]
  8. CLOZAPINE [Suspect]
     Route: 048

REACTIONS (1)
  - DEATH [None]
